FAERS Safety Report 23711870 (Version 3)
Quarter: 2024Q2

REPORT INFORMATION
  Report Type: Spontaneous
  Country: FR (occurrence: FR)
  Receive Date: 20240405
  Receipt Date: 20240416
  Transmission Date: 20240716
  Serious: Yes (Other)
  Sender: FDA-Public Use
  Company Number: FR-002147023-NVSC2023FR125107

PATIENT
  Age: 30 Year
  Sex: Female

DRUGS (2)
  1. GILENYA [Suspect]
     Active Substance: FINGOLIMOD HYDROCHLORIDE
     Indication: Relapsing-remitting multiple sclerosis
     Dosage: 0.5 MG, QD
     Route: 048
     Dates: start: 201712, end: 20230520
  2. TYSABRI [Concomitant]
     Active Substance: NATALIZUMAB
     Indication: Relapsing-remitting multiple sclerosis
     Dosage: 300 MG (6 WEEKS)
     Route: 042
     Dates: start: 20230613

REACTIONS (3)
  - Postpartum haemorrhage [Unknown]
  - Perineal injury [Unknown]
  - Maternal exposure during pregnancy [Unknown]
